FAERS Safety Report 5268713-X (Version None)
Quarter: 2007Q1

REPORT INFORMATION
  Report Type: 
  Country: None (occurrence: None)
  Receive Date: 20070319
  Receipt Date: 20070312
  Transmission Date: 20070707
  Serious: Yes (Hospitalization, Other)
  Sender: FDA-Public Use
  Company Number: US-MERCK-0703USA02153

PATIENT
  Age: 71 Year
  Sex: Male
  Weight: 115 kg

DRUGS (12)
  1. JANUVIA [Suspect]
     Indication: DIABETES MELLITUS
     Route: 048
     Dates: start: 20061228, end: 20070116
  2. LEVEMIR [Concomitant]
     Indication: DIABETES MELLITUS
     Route: 065
  3. ACTOS [Concomitant]
     Route: 065
  4. ALTACE [Concomitant]
     Indication: HYPERTENSION
     Route: 065
  5. TRICOR [Concomitant]
     Indication: HYPERLIPIDAEMIA
     Route: 065
  6. NORTRIPTYLINE [Concomitant]
     Indication: PAIN IN EXTREMITY
     Route: 065
  7. MOBIC [Concomitant]
     Route: 065
  8. QUININE [Concomitant]
     Indication: MUSCLE SPASMS
     Route: 065
  9. ASPIRIN [Concomitant]
     Route: 065
  10. DOCUSATE SODIUM [Concomitant]
     Route: 065
  11. CALCET [Concomitant]
     Route: 065
  12. METAGLIP [Concomitant]
     Route: 065

REACTIONS (1)
  - PANCREATITIS [None]
